FAERS Safety Report 25079103 (Version 1)
Quarter: 2025Q1

REPORT INFORMATION
  Report Type: Spontaneous
  Country: US (occurrence: None)
  Receive Date: 20250314
  Receipt Date: 20250314
  Transmission Date: 20250408
  Serious: No
  Sender: FDA-CTU
  Company Number: None

PATIENT

DRUGS (5)
  1. OPSUMIT [Suspect]
     Active Substance: MACITENTAN
  2. TORSEMIDE [Concomitant]
     Active Substance: TORSEMIDE
  3. SODIUM BICARBONATE [Concomitant]
     Active Substance: SODIUM BICARBONATE
  4. JARDIANCE [Concomitant]
     Active Substance: EMPAGLIFLOZIN
  5. ISOSORBIDE [Concomitant]
     Active Substance: ISOSORBIDE

REACTIONS (4)
  - Fluid retention [None]
  - Hypotension [None]
  - Therapy change [None]
  - Dyspnoea [None]
